FAERS Safety Report 7699438-9 (Version None)
Quarter: 2011Q3

REPORT INFORMATION
  Report Type: 
  Country: None (occurrence: None)
  Receive Date: 20110820
  Receipt Date: 20100916
  Transmission Date: 20111222
  Serious: No
  Sender: FDA-Public Use
  Company Number: US-ALLERGAN-1012024US

PATIENT
  Age: 74 Year
  Sex: Female

DRUGS (1)
  1. SANCTURA XR [Suspect]
     Indication: BLADDER DISORDER
     Dosage: 60 MG, UNK
     Route: 048
     Dates: start: 20100910

REACTIONS (4)
  - VOMITING [None]
  - ASTHENIA [None]
  - TONGUE DISORDER [None]
  - CONSTIPATION [None]
